FAERS Safety Report 11417138 (Version 1)
Quarter: 2015Q3

REPORT INFORMATION
  Report Type: Spontaneous
  Country: US (occurrence: US)
  Receive Date: 20150825
  Receipt Date: 20150825
  Transmission Date: 20151125
  Serious: No
  Sender: FDA-Public Use
  Company Number: US-MYLANLABS-2014M1014928

PATIENT
  Sex: Female

DRUGS (1)
  1. PENTOXIFYLLINE EXTENDED-RELEASE TABLETS, USP [Suspect]
     Active Substance: PENTOXIFYLLINE
     Dosage: 400 MG, QD
     Route: 048

REACTIONS (1)
  - Reaction to drug excipients [Not Recovered/Not Resolved]
